FAERS Safety Report 25507992 (Version 4)
Quarter: 2025Q3

REPORT INFORMATION
  Report Type: Spontaneous
  Country: JP (occurrence: JP)
  Receive Date: 20250703
  Receipt Date: 20250902
  Transmission Date: 20251021
  Serious: Yes (Hospitalization)
  Sender: ASTELLAS
  Company Number: JP-ASTELLAS-2025-AER-035629

PATIENT
  Age: 90 Year
  Sex: Male
  Weight: 71 kg

DRUGS (15)
  1. XTANDI [Suspect]
     Active Substance: ENZALUTAMIDE
     Indication: Prostate cancer metastatic
     Route: 048
     Dates: start: 20240111, end: 20240124
  2. XTANDI [Suspect]
     Active Substance: ENZALUTAMIDE
     Route: 048
     Dates: start: 20240610, end: 20240818
  3. XTANDI [Suspect]
     Active Substance: ENZALUTAMIDE
     Route: 048
     Dates: start: 20240819, end: 20241201
  4. OXYCONTIN [Concomitant]
     Active Substance: OXYCODONE HYDROCHLORIDE
     Indication: Cancer pain
     Route: 048
     Dates: start: 20240112
  5. OXYCODONE HYDROCHLORIDE [Concomitant]
     Active Substance: OXYCODONE HYDROCHLORIDE
     Indication: Cancer pain
     Route: 048
     Dates: start: 20240112
  6. Azilsartan OD Tablets [Concomitant]
     Indication: Hypertension
     Route: 048
  7. BENZBROMARONE [Concomitant]
     Active Substance: BENZBROMARONE
     Indication: Gout
     Route: 048
  8. Omega-3 Fatty Acid Ethyl Granular Capsules [Concomitant]
     Indication: Dyslipidaemia
     Route: 048
  9. Biofermin Tablets [Concomitant]
     Indication: Enterocolitis
     Dosage: 3 TABLETS/DAY
     Route: 048
  10. AMLODIPINE [Concomitant]
     Active Substance: AMLODIPINE BESYLATE
     Indication: Hypertension
     Route: 048
     Dates: end: 20240215
  11. SENNOSIDES [Concomitant]
     Active Substance: SENNOSIDES
     Indication: Constipation
     Route: 048
     Dates: end: 20240124
  12. Picosulfate Na Oral Solution [Concomitant]
     Indication: Constipation
     Route: 048
  13. Magnesium Oxide Tablets [Concomitant]
     Indication: Constipation
     Route: 048
  14. Tamsulosin OD Tablets [Concomitant]
     Indication: Benign prostatic hyperplasia
     Route: 048
  15. LOXOPROFEN SODIUM [Concomitant]
     Active Substance: LOXOPROFEN SODIUM
     Indication: Cancer pain
     Route: 048

REACTIONS (2)
  - Interstitial lung disease [Recovered/Resolved]
  - Bronchitis [Recovered/Resolved]

NARRATIVE: CASE EVENT DATE: 20240117
